FAERS Safety Report 6289487-X (Version None)
Quarter: 2009Q3

REPORT INFORMATION
  Report Type: 
  Country: None (occurrence: None)
  Receive Date: 20090730
  Receipt Date: 20090723
  Transmission Date: 20100115
  Serious: Yes (Hospitalization)
  Sender: FDA-Public Use
  Company Number: FR-TEVA-199042USA

PATIENT
  Sex: Male

DRUGS (4)
  1. BISELECT [Suspect]
     Indication: HYPERTENSION
     Route: 048
  2. ATORVASTATIN CALCIUM [Suspect]
     Indication: HYPERCHOLESTEROLAEMIA
     Route: 048
     Dates: end: 20090611
  3. TELMISARTAN [Suspect]
     Indication: HYPERCHOLESTEROLAEMIA
     Route: 048
  4. AVANDAMET [Suspect]
     Indication: TYPE 2 DIABETES MELLITUS
     Route: 048
     Dates: end: 20090611

REACTIONS (3)
  - BLOOD CREATINE PHOSPHOKINASE INCREASED [None]
  - RHABDOMYOLYSIS [None]
  - TRANSAMINASES INCREASED [None]
